FAERS Safety Report 6978668-5 (Version None)
Quarter: 2010Q3

REPORT INFORMATION
  Report Type: 
  Country: None (occurrence: None)
  Receive Date: 20100913
  Receipt Date: 20100827
  Transmission Date: 20110219
  Serious: Yes (Hospitalization)
  Sender: FDA-Public Use
  Company Number: A0862023A

PATIENT
  Age: 45 Year
  Sex: Female

DRUGS (8)
  1. AVANDIA [Suspect]
     Indication: DIABETES MELLITUS
     Dosage: 4MG TWICE PER DAY
     Route: 048
  2. COREG [Concomitant]
  3. VASOTEC [Concomitant]
  4. CLONIDINE [Concomitant]
  5. LYRICA [Concomitant]
  6. VICODIN [Concomitant]
  7. ZOCOR [Concomitant]
  8. HUMALOG [Concomitant]

REACTIONS (1)
  - CEREBROVASCULAR ACCIDENT [None]
